FAERS Safety Report 8221528 (Version 3)
Quarter: 2017Q3

REPORT INFORMATION
  Report Type: Spontaneous
  Country: US (occurrence: US)
  Receive Date: 20111102
  Receipt Date: 20170821
  Transmission Date: 20171128
  Serious: Yes (Other)
  Sender: FDA-Public Use
  Company Number: US-ROCHE-1006923

PATIENT
  Age: 69 Year
  Sex: Male
  Weight: 80.36 kg

DRUGS (7)
  1. PREDNISONE. [Concomitant]
     Active Substance: PREDNISONE
     Indication: RHEUMATOID ARTHRITIS
     Route: 048
     Dates: start: 20120215
  2. METHOTREXATE. [Concomitant]
     Active Substance: METHOTREXATE
     Indication: RHEUMATOID ARTHRITIS
     Route: 048
     Dates: start: 2005
  3. METHOTREXATE. [Concomitant]
     Active Substance: METHOTREXATE
     Route: 048
     Dates: start: 2007
  4. MELOXICAM. [Concomitant]
     Active Substance: MELOXICAM
     Indication: RHEUMATOID ARTHRITIS
     Route: 048
     Dates: start: 2007
  5. ACTEMRA [Suspect]
     Active Substance: TOCILIZUMAB
     Indication: RHEUMATOID ARTHRITIS
     Route: 042
     Dates: start: 201012
  6. FINASTERIDE. [Concomitant]
     Active Substance: FINASTERIDE
     Route: 048
     Dates: start: 2007
  7. ACTEMRA [Suspect]
     Active Substance: TOCILIZUMAB
     Route: 042
     Dates: end: 20111013

REACTIONS (3)
  - Platelet count decreased [Unknown]
  - Pancytopenia [Unknown]
  - Neutropenia [Recovered/Resolved]

NARRATIVE: CASE EVENT DATE: 20111004
